FAERS Safety Report 18337453 (Version 1)
Quarter: 2020Q4

REPORT INFORMATION
  Report Type: Spontaneous
  Country: US (occurrence: US)
  Receive Date: 20201002
  Receipt Date: 20201002
  Transmission Date: 20210113
  Serious: No
  Sender: FDA-Public Use
  Company Number: US-TEVA-2020-US-1834222

PATIENT
  Sex: Female

DRUGS (20)
  1. BRILINTA [Concomitant]
     Active Substance: TICAGRELOR
  2. CARVEDILOL. [Concomitant]
     Active Substance: CARVEDILOL
  3. DETROL LA [Concomitant]
     Active Substance: TOLTERODINE TARTRATE
  4. CRESTOR [Concomitant]
     Active Substance: ROSUVASTATIN CALCIUM
  5. EPIPEN [Concomitant]
     Active Substance: EPINEPHRINE
  6. NEURONTIN [Concomitant]
     Active Substance: GABAPENTIN
  7. VITAMIN B COMPLEX [Concomitant]
     Active Substance: CYANOCOBALAMIN\DEXPANTHENOL\NIACINAMIDE\PYRIDOXINE HYDROCHLORIDE\RIBOFLAVIN 5^-PHOSPHATE SODIUM\THIAMINE HYDROCHLORIDE\VITAMIN B COMPLEX
  8. TRAZODONE [Concomitant]
     Active Substance: TRAZODONE HYDROCHLORIDE
  9. MVIT D3 [Concomitant]
  10. GARLIC. [Concomitant]
     Active Substance: GARLIC
  11. COPAXONE [Suspect]
     Active Substance: GLATIRAMER ACETATE
     Indication: MULTIPLE SCLEROSIS
     Route: 058
     Dates: start: 20170727
  12. ASP 81 [Concomitant]
  13. PANTOPRAZOLE [Concomitant]
     Active Substance: PANTOPRAZOLE
  14. VITAMIN B12 [Concomitant]
     Active Substance: CYANOCOBALAMIN
  15. ESCITALOPRAM [Concomitant]
     Active Substance: ESCITALOPRAM OXALATE
  16. MULTIVITAMIN [Concomitant]
     Active Substance: VITAMINS
  17. APAP/CODEINE [Concomitant]
     Active Substance: ACETAMINOPHEN\CODEINE PHOSPHATE
  18. CALCIUM CIT [Concomitant]
  19. FISH OIL [Concomitant]
     Active Substance: FISH OIL
  20. LOSARTAN POT [Concomitant]
     Active Substance: LOSARTAN POTASSIUM

REACTIONS (2)
  - Drug ineffective [Unknown]
  - Adverse event [Not Recovered/Not Resolved]
